FAERS Safety Report 7487840-X (Version None)
Quarter: 2011Q2

REPORT INFORMATION
  Report Type: 
  Country: None (occurrence: None)
  Receive Date: 20110511
  Receipt Date: 20110427
  Transmission Date: 20111010
  Serious: Yes (Death)
  Sender: FDA-Public Use
  Company Number: 904666

PATIENT
  Age: 54 Year
  Sex: Male

DRUGS (9)
  1. CYTARABINE [Suspect]
     Indication: LEUKAEMIC INFILTRATION BRAIN
     Dosage: 30 MG THRICE WEEKLY, INTRATHECAL
     Route: 037
  2. CYTARABINE [Suspect]
     Indication: ACUTE MYELOID LEUKAEMIA
     Dosage: 30 MG THRICE WEEKLY, INTRATHECAL
     Route: 037
  3. HYDROCORTISONE [Suspect]
     Indication: ACUTE MYELOID LEUKAEMIA
     Dosage: 12.5 MG THRICE WEEKLY INTRATHECAL
     Route: 037
  4. HYDROCORTISONE [Suspect]
     Indication: LEUKAEMIC INFILTRATION BRAIN
     Dosage: 12.5 MG THRICE WEEKLY INTRATHECAL
     Route: 037
  5. IDARUBICIN HCL [Suspect]
  6. METHOTREXATE [Suspect]
     Indication: ACUTE MYELOID LEUKAEMIA
     Dosage: 12.5 MG THRICE WEEKLY INTRATHECAL
     Route: 037
  7. METHOTREXATE [Suspect]
     Indication: LEUKAEMIC INFILTRATION BRAIN
     Dosage: 12.5 MG THRICE WEEKLY INTRATHECAL
     Route: 037
  8. ETOPOSIDE [Suspect]
     Indication: ACUTE MYELOID LEUKAEMIA
  9. ETOPOSIDE [Suspect]
     Indication: LEUKAEMIC INFILTRATION BRAIN

REACTIONS (4)
  - NEUTROPENIA [None]
  - FUNGAL INFECTION [None]
  - BLOOD CULTURE POSITIVE [None]
  - SEPTIC SHOCK [None]
